FAERS Safety Report 5629095-4 (Version None)
Quarter: 2008Q1

REPORT INFORMATION
  Report Type: 
  Country: None (occurrence: None)
  Receive Date: 20080216
  Receipt Date: 20080111
  Transmission Date: 20080703
  Serious: No
  Sender: FDA-Public Use
  Company Number: US-BAXTER-2008BH000353

PATIENT

DRUGS (2)
  1. HEPARIN SODIUM [Suspect]
     Indication: DRUG USE FOR UNKNOWN INDICATION
     Dosage: DOSE UNIT:UNKNOWN
     Route: 040
     Dates: start: 20080101, end: 20080101
  2. HEPARIN SODIUM [Suspect]
     Dosage: DOSE UNIT:UNKNOWN
     Route: 040
     Dates: start: 20080101, end: 20080101

REACTIONS (1)
  - HYPOTENSION [None]
